FAERS Safety Report 5782834-4 (Version None)
Quarter: 2008Q2

REPORT INFORMATION
  Report Type: 
  Country: None (occurrence: None)
  Receive Date: 20080624
  Receipt Date: 20080618
  Transmission Date: 20081010
  Serious: Yes (Death, Other)
  Sender: FDA-Public Use
  Company Number: US-BAYER-200826092NA

PATIENT
  Age: 73 Year
  Sex: Male
  Weight: 88 kg

DRUGS (17)
  1. SORAFENIB OR PLACEBO [Suspect]
     Indication: METASTATIC MALIGNANT MELANOMA
     Dosage: TOTAL DAILY DOSE: 800 MG  UNIT DOSE: 200 MG
     Route: 048
     Dates: start: 20080129, end: 20080218
  2. SORAFENIB OR PLACEBO [Suspect]
     Dosage: TOTAL DAILY DOSE: 800 MG  UNIT DOSE: 200 MG
     Route: 048
     Dates: start: 20080219, end: 20080304
  3. CARBOPLATIN [Suspect]
     Indication: METASTATIC MALIGNANT MELANOMA
     Route: 042
     Dates: start: 20080128, end: 20080128
  4. CARBOPLATIN [Suspect]
     Route: 042
     Dates: start: 20080218, end: 20080218
  5. PACLITAXEL [Suspect]
     Indication: METASTATIC MALIGNANT MELANOMA
     Route: 042
     Dates: start: 20080128, end: 20080128
  6. PACLITAXEL [Suspect]
     Dosage: UNIT DOSE: 225 MG/M2
     Route: 042
     Dates: start: 20080218, end: 20080218
  7. FLOMAX [Concomitant]
  8. CIPRO [Concomitant]
  9. AVODART [Concomitant]
  10. LORTAB [Concomitant]
  11. ZOFRAN [Concomitant]
  12. COMPAZINE [Concomitant]
  13. GLIPIZIDE [Concomitant]
  14. NEXIUM [Concomitant]
  15. DECADRON [Concomitant]
  16. ASPIRIN [Concomitant]
  17. LOZOL [Concomitant]

REACTIONS (6)
  - CARDIO-RESPIRATORY ARREST [None]
  - HYPOCALCAEMIA [None]
  - HYPONATRAEMIA [None]
  - NEUTROPENIA [None]
  - PLATELET DISORDER [None]
  - WEIGHT DECREASED [None]
